FAERS Safety Report 4823607-6 (Version None)
Quarter: 2005Q4

REPORT INFORMATION
  Report Type: 
  Country: None (occurrence: None)
  Receive Date: 20051109
  Receipt Date: 20051028
  Transmission Date: 20060501
  Serious: Yes (Hospitalization)
  Sender: FDA-Public Use
  Company Number: US-JNJFOC-20051100256

PATIENT
  Sex: Female
  Weight: 70.31 kg

DRUGS (11)
  1. DURAGESIC-100 [Suspect]
     Route: 062
     Dates: start: 20050401
  2. DURAGESIC-100 [Suspect]
     Route: 062
     Dates: start: 20050401
  3. PROTONIX [Concomitant]
     Route: 048
  4. EFFEXOR [Concomitant]
     Indication: DEPRESSION
     Route: 048
  5. KLONOPIN [Concomitant]
     Route: 048
  6. AMBIEN [Concomitant]
     Route: 048
  7. FORTEO [Concomitant]
     Indication: OSTEOPOROSIS
     Route: 058
  8. LEXAPRO [Concomitant]
     Indication: DEPRESSION
     Route: 048
  9. ZYRTEC [Concomitant]
     Route: 048
  10. MAXZIDE [Concomitant]
     Route: 048
  11. MAXZIDE [Concomitant]
     Indication: HYPERTENSION
     Route: 048

REACTIONS (1)
  - PNEUMONIA [None]
